FAERS Safety Report 21251666 (Version 2)
Quarter: 2022Q4

REPORT INFORMATION
  Report Type: Report from Study
  Country: BR (occurrence: BR)
  Receive Date: 20220825
  Receipt Date: 20221028
  Transmission Date: 20230113
  Serious: Yes (Hospitalization)
  Sender: FDA-Public Use
  Company Number: BR-BIOGEN-2022BI01148742

PATIENT
  Sex: Female
  Weight: 68 kg

DRUGS (6)
  1. TYSABRI [Suspect]
     Active Substance: NATALIZUMAB
     Indication: Multiple sclerosis
     Dosage: INFUSED OVER 1 HOUR
     Route: 050
     Dates: start: 20111001, end: 2017
  2. TYSABRI [Suspect]
     Active Substance: NATALIZUMAB
     Dosage: INFUSED OVER 1 HOUR
     Route: 050
     Dates: start: 2018
  3. COVID-19 VACCINE NOS [Suspect]
     Active Substance: COVID-19 VACCINE NOS
     Indication: COVID-19 prophylaxis
     Route: 050
  4. VITAMIN D [Concomitant]
     Active Substance: VITAMIN D NOS
     Indication: Vitamin supplementation
     Dosage: 2 TABLETS
     Route: 050
     Dates: start: 2011
  5. ZINC [Concomitant]
     Active Substance: ZINC
     Indication: Product used for unknown indication
     Route: 050
  6. DIVALCON (DIVALPROATE SODIUM) [Concomitant]
     Indication: Migraine
     Route: 050
     Dates: start: 202206

REACTIONS (1)
  - Multiple sclerosis relapse [Recovered/Resolved with Sequelae]
